FAERS Safety Report 10844456 (Version 2)
Quarter: 2015Q1

REPORT INFORMATION
  Report Type: Spontaneous
  Country: US (occurrence: US)
  Receive Date: 20150220
  Receipt Date: 20150220
  Transmission Date: 20150721
  Serious: Yes (Other)
  Sender: FDA-Public Use
  Company Number: US-SUCAMPO AG-SPI201500105

PATIENT
  Sex: Female
  Weight: 77 kg

DRUGS (3)
  1. FENTANYL DURAGESIC [Concomitant]
     Indication: PAIN
     Dosage: UNK
     Route: 062
  2. ^THYROID PILL^ [Concomitant]
     Indication: HYPOTHYROIDISM
     Dosage: UNK
     Route: 048
  3. AMITIZA [Suspect]
     Active Substance: LUBIPROSTONE
     Indication: CONSTIPATION
     Dosage: 24 MCG, BID
     Route: 048
     Dates: start: 20150130

REACTIONS (1)
  - Cellulitis [Not Recovered/Not Resolved]
